FAERS Safety Report 24780388 (Version 1)
Quarter: 2024Q4

REPORT INFORMATION
  Report Type: Spontaneous
  Country: DE (occurrence: DE)
  Receive Date: 20241227
  Receipt Date: 20241227
  Transmission Date: 20250115
  Serious: Yes (Hospitalization, Other)
  Sender: ALKEM
  Company Number: DE-ALKEM LABORATORIES LIMITED-DE-ALKEM-2024-26144

PATIENT
  Sex: Male

DRUGS (7)
  1. IBUPROFEN [Suspect]
     Active Substance: IBUPROFEN
     Indication: Product used for unknown indication
     Dosage: 1200 MILLIGRAM
     Route: 065
  2. IBUPROFEN [Suspect]
     Active Substance: IBUPROFEN
     Dosage: 1800 MILLIGRAM
     Route: 065
  3. COSENTYX [Suspect]
     Active Substance: SECUKINUMAB
     Indication: Psoriatic arthropathy
     Dosage: 300 MILLIGRAM, (EVERY 4 WEEK)
     Route: 058
     Dates: start: 20180802, end: 20191115
  4. COSENTYX [Suspect]
     Active Substance: SECUKINUMAB
     Dosage: 300 MILLIGRAM
     Route: 058
  5. ACEMETACIN [Concomitant]
     Active Substance: ACEMETACIN
     Indication: Product used for unknown indication
     Dosage: 60 MILLIGRAM
     Route: 065
     Dates: start: 20170301, end: 20191101
  6. ACEMETACIN [Concomitant]
     Active Substance: ACEMETACIN
     Dosage: 120 MILLIGRAM
     Route: 065
  7. ACEMETACIN [Concomitant]
     Active Substance: ACEMETACIN
     Dosage: 60 MILLIGRAM
     Route: 065
     Dates: start: 20200727, end: 20211215

REACTIONS (13)
  - Alcoholism [Unknown]
  - Alcohol abuse [Unknown]
  - Intervertebral disc protrusion [Unknown]
  - Spinal osteoarthritis [Unknown]
  - Meniscus injury [Not Recovered/Not Resolved]
  - Contusion [Unknown]
  - Tendon rupture [Unknown]
  - Osteoarthritis [Unknown]
  - Bronchitis [Unknown]
  - Influenza like illness [Unknown]
  - Musculoskeletal discomfort [Unknown]
  - Oedema peripheral [Unknown]
  - Depression [Unknown]

NARRATIVE: CASE EVENT DATE: 20190315
